FAERS Safety Report 6766844-6 (Version None)
Quarter: 2010Q2

REPORT INFORMATION
  Report Type: 
  Country: None (occurrence: None)
  Receive Date: 20100609
  Receipt Date: 20100531
  Transmission Date: 20101027
  Serious: Yes (Other)
  Sender: FDA-Public Use
  Company Number: 2010AL002962

PATIENT
  Age: 15 Year
  Sex: Female

DRUGS (3)
  1. FLUOXETINE [Suspect]
     Indication: SCHIZOAFFECTIVE DISORDER
     Dosage: 60 MG; PO
     Route: 048
     Dates: start: 20100121, end: 20100330
  2. OLANZAPINE [Concomitant]
  3. RISPERIDONE [Concomitant]

REACTIONS (1)
  - TARDIVE DYSKINESIA [None]
